FAERS Safety Report 6056940-3 (Version None)
Quarter: 2009Q1

REPORT INFORMATION
  Report Type: 
  Country: None (occurrence: None)
  Receive Date: 20090126
  Receipt Date: 20090126
  Transmission Date: 20090719
  Serious: Yes (Hospitalization)
  Sender: FDA-Public Use
  Company Number: None

PATIENT
  Sex: Male

DRUGS (3)
  1. BABYRUB OINTMENT, EUCALYPTUS OIL 129 MG, 1 APPLICATION [Suspect]
     Indication: COUGH
     Route: 061
  2. BABYRUB OINTMENT, EUCALYPTUS OIL 129 MG, 1 APPLICATION [Suspect]
     Indication: RHINORRHOEA
     Route: 061
  3. VAPO STEAM LIQUID, CAMPHOR 6.2%, 1DF [Suspect]

REACTIONS (4)
  - BRONCHIOLITIS [None]
  - CRYING [None]
  - PALLOR [None]
  - PNEUMONIA VIRAL [None]
